FAERS Safety Report 16379320 (Version 2)
Quarter: 2019Q2

REPORT INFORMATION
  Report Type: Report from Study
  Country: US (occurrence: US)
  Receive Date: 20190531
  Receipt Date: 20190613
  Transmission Date: 20190711
  Serious: Yes (Hospitalization)
  Sender: FDA-Public Use
  Company Number: US-ACTELION-A-US2019-189671

PATIENT
  Sex: Male

DRUGS (3)
  1. REVATIO [Concomitant]
     Active Substance: SILDENAFIL CITRATE
     Dosage: 0-8 ML, Q6HS
     Dates: start: 20190329
  2. BOSENTAN TABLET 32 MG PED US [Suspect]
     Active Substance: BOSENTAN
     Dosage: 15.6 MG, QD
     Route: 048
     Dates: start: 20190404
  3. BOSENTAN TABLET 32 MG PED US [Suspect]
     Active Substance: BOSENTAN
     Indication: PULMONARY ARTERIAL HYPERTENSION
     Dosage: 16 MG, QD
     Route: 048
     Dates: start: 20190419, end: 20190509

REACTIONS (3)
  - Cardiac operation [Recovering/Resolving]
  - Pulmonary arterial hypertension [Recovered/Resolved]
  - Pyrexia [Unknown]
